FAERS Safety Report 16346247 (Version 2)
Quarter: 2019Q2

REPORT INFORMATION
  Report Type: Spontaneous
  Country: PT (occurrence: PT)
  Receive Date: 20190523
  Receipt Date: 20190617
  Transmission Date: 20190711
  Serious: Yes (Hospitalization, Other)
  Sender: FDA-Public Use
  Company Number: PT-BAUSCH-BL-2019-014938

PATIENT
  Age: 18 Month
  Sex: Male
  Weight: 8.3 kg

DRUGS (17)
  1. GENTAMICIN SULFATE. [Suspect]
     Active Substance: GENTAMICIN SULFATE
     Indication: DEVICE RELATED INFECTION
     Dosage: FIRST ADMINISTRATION: ON DAY 1 OF HOSPITALIZATION
     Route: 042
  2. PIPERACILLIN SODIUM/TAZOBACTAM SODIUM [Suspect]
     Active Substance: PIPERACILLIN SODIUM\TAZOBACTAM SODIUM
     Indication: DEVICE RELATED INFECTION
  3. AMPHOTERICIN B. [Suspect]
     Active Substance: AMPHOTERICIN B
     Indication: DEVICE RELATED INFECTION
     Route: 042
  4. GENTAMICIN SULFATE. [Suspect]
     Active Substance: GENTAMICIN SULFATE
     Indication: PSEUDOMONAS INFECTION
     Dosage: SECOND ADMINISTRATION: 3 DAYS AFTER FINISHING THE FIRST COURSE OF ANTIBIOTICS (ON DAY 16 OF HOSPIT.)
     Route: 042
  5. GENTAMICIN SULFATE. [Suspect]
     Active Substance: GENTAMICIN SULFATE
     Indication: STAPHYLOCOCCAL INFECTION
     Route: 042
  6. FLUCONAZOLE. [Suspect]
     Active Substance: FLUCONAZOLE
     Indication: CANDIDA INFECTION
     Route: 042
  7. VANCOMYCIN HYDROCHLORIDE. [Suspect]
     Active Substance: VANCOMYCIN HYDROCHLORIDE
     Indication: STAPHYLOCOCCAL INFECTION
     Dosage: FIRST ADMINISTRATION ON DAY 25 OF HOSPITALIZATION: THIRD ANTIBIOTIC CYCLE
     Route: 042
  8. PIPERACILLIN SODIUM/TAZOBACTAM SODIUM [Suspect]
     Active Substance: PIPERACILLIN SODIUM\TAZOBACTAM SODIUM
     Indication: CANDIDA INFECTION
     Dosage: FIRST ADMINISTRATION ON DAY 25 OF HOSPITALIZATION: THIRD ANTIBIOTIC CYCLE
     Route: 042
  9. VANCOMYCIN HYDROCHLORIDE. [Suspect]
     Active Substance: VANCOMYCIN HYDROCHLORIDE
     Indication: DEVICE RELATED INFECTION
     Dosage: FIRST ADMINISTRATION ON DAY 1 OF HOSPITALIZATION
     Route: 042
  10. AMPHOTERICIN B. [Suspect]
     Active Substance: AMPHOTERICIN B
     Route: 065
  11. CEFTAZIDIME. [Concomitant]
     Active Substance: CEFTAZIDIME
     Indication: PSEUDOMONAS INFECTION
  12. METRONIDAZOLE. [Suspect]
     Active Substance: METRONIDAZOLE
     Indication: PSEUDOMONAS INFECTION
     Route: 065
  13. VANCOMYCIN HYDROCHLORIDE. [Suspect]
     Active Substance: VANCOMYCIN HYDROCHLORIDE
     Indication: PSEUDOMONAS INFECTION
     Route: 065
  14. CEFTAZIDIME. [Concomitant]
     Active Substance: CEFTAZIDIME
     Indication: DEVICE RELATED INFECTION
  15. FLUCONAZOLE. [Suspect]
     Active Substance: FLUCONAZOLE
     Indication: DEVICE RELATED INFECTION
     Dosage: FIRST ADMINISTRATION ON DAY 25 OF HOSPITALIZATION: THIRD ANTIBIOTIC CYCLE
     Route: 042
  16. AMPHOTERICIN B. [Suspect]
     Active Substance: AMPHOTERICIN B
     Indication: CANDIDA INFECTION
     Dosage: STARTED 3 DAYS AFTER FINISHING THE FIRST COURSE OF ANTIBIOTICS (ONDAY16 OF HOSPITALIZATION), STOPPED
     Route: 042
  17. METRONIDAZOLE. [Suspect]
     Active Substance: METRONIDAZOLE
     Indication: PSEUDOMONAS INFECTION
     Route: 042

REACTIONS (6)
  - Product use issue [Unknown]
  - Off label use [Unknown]
  - Acute kidney injury [Recovered/Resolved]
  - Respiratory alkalosis [Recovering/Resolving]
  - Generalised oedema [Recovering/Resolving]
  - Metabolic acidosis [Recovering/Resolving]
